FAERS Safety Report 11886209 (Version 2)
Quarter: 2016Q1

REPORT INFORMATION
  Report Type: Report from Study
  Country: CA (occurrence: CA)
  Receive Date: 20160104
  Receipt Date: 20160126
  Transmission Date: 20160526
  Serious: Yes (Disabling)
  Sender: FDA-Public Use
  Company Number: CA-OTSUKA-2015_017709

PATIENT
  Sex: Male

DRUGS (5)
  1. COLCHICINE. [Concomitant]
     Active Substance: COLCHICINE
     Indication: PRODUCT USED FOR UNKNOWN INDICATION
     Dosage: 0.6 MG, QOD (EVERY OTHER DAY)
     Route: 065
  2. TYLENOL [Concomitant]
     Active Substance: ACETAMINOPHEN
     Indication: PRODUCT USED FOR UNKNOWN INDICATION
     Dosage: 500 MG, PRN
     Route: 065
  3. ALTACE [Concomitant]
     Active Substance: RAMIPRIL
     Indication: PRODUCT USED FOR UNKNOWN INDICATION
     Dosage: 5 MG, QD
     Route: 065
  4. TOLVAPTAN [Suspect]
     Active Substance: TOLVAPTAN
     Indication: CONGENITAL CYSTIC KIDNEY DISEASE
     Dosage: PLACEBO 251, UNK
     Route: 065
     Dates: start: 2008, end: 2011
  5. TOLVAPTAN [Suspect]
     Active Substance: TOLVAPTAN
     Dosage: 120 MG, QD  (90 + 30MG)
     Route: 048
     Dates: start: 201106

REACTIONS (3)
  - Anxiety [Not Recovered/Not Resolved]
  - Insomnia [Not Recovered/Not Resolved]
  - Discomfort [Not Recovered/Not Resolved]
